FAERS Safety Report 19089477 (Version 1)
Quarter: 2021Q2

REPORT INFORMATION
  Report Type: Report from Study
  Country: UG (occurrence: UG)
  Receive Date: 20210403
  Receipt Date: 20210403
  Transmission Date: 20210717
  Serious: Yes (Death, Hospitalization, Other)
  Sender: FDA-Public Use
  Company Number: UG-CIPLA LTD.-2021UG02462

PATIENT

DRUGS (3)
  1. ABACAVIR/LAMIVUDINE [Suspect]
     Active Substance: ABACAVIR\LAMIVUDINE
     Indication: HIV INFECTION
     Dosage: 2 DOSAGE FORM, BID ((80MG/20MG BID DAILY) ASSOCIATED WITH 2 DAILY DOSES OF ABACAVIR/LAMIVUDINE FIXED
     Route: 048
     Dates: start: 20180104, end: 20180227
  2. COTRIMOXAZOLE [Concomitant]
     Active Substance: SULFAMETHOXAZOLE\TRIMETHOPRIM
     Indication: PROPHYLAXIS
     Dosage: UNK
     Route: 065
     Dates: start: 20180104, end: 20180305
  3. LOPINAVIR/RITONAVIR [Suspect]
     Active Substance: LOPINAVIR\RITONAVIR
     Indication: HIV INFECTION
     Dosage: 80/20 MG BID DAILY (4 DAILY DOSES OF LOPINAVIR/RITONAVIR FIXED COMBINATION (LPV/R 40MG/10MG PER UNIT
     Route: 048
     Dates: start: 20180104, end: 20180227

REACTIONS (2)
  - Pneumonia measles [None]
  - Pulmonary tuberculosis [None]

NARRATIVE: CASE EVENT DATE: 20180130
